FAERS Safety Report 12616954 (Version 1)
Quarter: 2016Q3

REPORT INFORMATION
  Report Type: Spontaneous
  Country: US (occurrence: US)
  Receive Date: 20160803
  Receipt Date: 20160803
  Transmission Date: 20161109
  Serious: No
  Sender: FDA-Public Use
  Company Number: US-ZYDUS-011165

PATIENT
  Age: 42 Year
  Sex: Female

DRUGS (6)
  1. TRAMADOL/TRAMADOL HYDROCHLORIDE [Concomitant]
  2. TOPIRAMATE. [Concomitant]
     Active Substance: TOPIRAMATE
  3. OLMESARTAN [Concomitant]
     Active Substance: OLMESARTAN
  4. OXCARBAZEPINE. [Concomitant]
     Active Substance: OXCARBAZEPINE
  5. BUPROPION/BUPROPION HYDROCHLORIDE [Suspect]
     Active Substance: BUPROPION HYDROCHLORIDE
     Indication: BIPOLAR DISORDER
     Dates: start: 20160418
  6. ALPRAZOLAM. [Concomitant]
     Active Substance: ALPRAZOLAM

REACTIONS (6)
  - Fatigue [Not Recovered/Not Resolved]
  - Drug withdrawal syndrome [Not Recovered/Not Resolved]
  - Dizziness [Not Recovered/Not Resolved]
  - Dissociation [Not Recovered/Not Resolved]
  - Headache [Not Recovered/Not Resolved]
  - Product substitution issue [None]

NARRATIVE: CASE EVENT DATE: 20160505
